FAERS Safety Report 15010618 (Version 1)
Quarter: 2018Q2

REPORT INFORMATION
  Report Type: Spontaneous
  Country: US (occurrence: US)
  Receive Date: 20180614
  Receipt Date: 20180614
  Transmission Date: 20180711
  Serious: No
  Sender: FDA-Public Use
  Company Number: US-MIST-STN-2018-0182

PATIENT
  Sex: Male

DRUGS (2)
  1. STENDRA [Suspect]
     Active Substance: AVANAFIL
     Dosage: 200MG
     Route: 048
  2. STENDRA [Suspect]
     Active Substance: AVANAFIL
     Indication: PRODUCT USED FOR UNKNOWN INDICATION
     Dosage: ONE HALF (1/2) OF A 200MG TABLET
     Route: 048

REACTIONS (7)
  - Product storage error [Unknown]
  - Nasal congestion [Unknown]
  - Wrong technique in product usage process [Unknown]
  - Flushing [Unknown]
  - Drug ineffective [Unknown]
  - Headache [Unknown]
  - Product measured potency issue [Unknown]
